FAERS Safety Report 6175579-2 (Version None)
Quarter: 2009Q2

REPORT INFORMATION
  Report Type: 
  Country: None (occurrence: None)
  Receive Date: 20090501
  Receipt Date: 20090428
  Transmission Date: 20091009
  Serious: Yes (Other)
  Sender: FDA-Public Use
  Company Number: ES-JNJFOC-20090406990

PATIENT
  Age: 80 Year
  Sex: Female

DRUGS (3)
  1. LOPERAMIDE HCL [Suspect]
     Indication: IRRITABLE BOWEL SYNDROME
     Route: 065
  2. ACETYLSALICYLIC ACID [Concomitant]
     Indication: TRANSIENT ISCHAEMIC ATTACK
     Route: 048
  3. MYSOLINE [Concomitant]
     Indication: EPILEPSY
     Route: 048

REACTIONS (1)
  - INTERSTITIAL LUNG DISEASE [None]
